FAERS Safety Report 4487242-4 (Version None)
Quarter: 2004Q4

REPORT INFORMATION
  Report Type: 
  Country: None (occurrence: None)
  Receive Date: 20041022
  Receipt Date: 20041008
  Transmission Date: 20050328
  Serious: Yes (Hospitalization)
  Sender: FDA-Public Use
  Company Number: 239491

PATIENT
  Age: 45 Year
  Sex: Female
  Weight: 47 kg

DRUGS (9)
  1. NOVOLIN 30R PENFIL(INSULIN HUMAN) [Suspect]
     Indication: DIABETES MELLITUS INSULIN-DEPENDENT
     Dosage: 34 IU, QD, SUBCUTANEOUS
     Route: 058
     Dates: start: 19970701
  2. NOVOLIN 30R PENFIL(INSULIN HUMAN) [Suspect]
     Indication: DIABETES MELLITUS INSULIN-DEPENDENT
     Dosage: 34 IU, QD, SUBCUTANEOUS
     Route: 058
     Dates: start: 20040701
  3. ASPIRIN [Concomitant]
  4. VITAMIN B1             (TIAMINE HYDROCHLORIDE) [Concomitant]
  5. MERISLON (BETAHISTINE HYDROCHLORIDE) [Concomitant]
  6. METHYCOBAL (MECOBALAMIN) [Concomitant]
  7. ALPRAZOLAM [Concomitant]
  8. SOMAZINA (CITICOLINE) [Concomitant]
  9. METFORMIN [Concomitant]

REACTIONS (3)
  - DIABETES MELLITUS INSULIN-DEPENDENT [None]
  - HYPOGLYCAEMIA [None]
  - TRANSIENT ISCHAEMIC ATTACK [None]
